FAERS Safety Report 5746043-7 (Version None)
Quarter: 2008Q2

REPORT INFORMATION
  Report Type: 
  Country: None (occurrence: None)
  Receive Date: 20080522
  Receipt Date: 20080512
  Transmission Date: 20081010
  Serious: Yes (Other)
  Sender: FDA-Public Use
  Company Number: GB-JNJFOC-20080502620

PATIENT
  Sex: Male
  Weight: 84 kg

DRUGS (9)
  1. REMICADE [Suspect]
     Indication: DRUG USE FOR UNKNOWN INDICATION
     Route: 042
  2. SULFASALAZINE [Concomitant]
  3. METHOTREXATE [Concomitant]
  4. ASPIRIN [Concomitant]
  5. CO-PROXAMOL [Concomitant]
  6. FOLIC ACID [Concomitant]
  7. FUROSEMIDE [Concomitant]
  8. NAPROXEN [Concomitant]
  9. ZESTRIL [Concomitant]

REACTIONS (1)
  - PROSTATE CANCER [None]
